FAERS Safety Report 10232504 (Version 2)
Quarter: 2014Q2

REPORT INFORMATION
  Report Type: Spontaneous
  Country: DE (occurrence: DE)
  Receive Date: 20140612
  Receipt Date: 20140612
  Transmission Date: 20141212
  Serious: Yes (Hospitalization, Other)
  Sender: FDA-Public Use
  Company Number: DE-JNJFOC-20140403380

PATIENT
  Sex: Male
  Weight: 61.22 kg

DRUGS (5)
  1. XARELTO [Suspect]
     Indication: CEREBROVASCULAR ACCIDENT PROPHYLAXIS
     Route: 048
  2. XARELTO [Suspect]
     Indication: CEREBROVASCULAR ACCIDENT PROPHYLAXIS
     Route: 048
  3. XARELTO [Suspect]
     Indication: ATRIAL FIBRILLATION
     Route: 048
  4. XARELTO [Suspect]
     Indication: ATRIAL FIBRILLATION
     Route: 048
  5. PANTOPRAZOLE [Concomitant]
     Route: 065

REACTIONS (4)
  - Prostatic haemorrhage [Recovered/Resolved]
  - Renal failure acute [Recovered/Resolved]
  - Haematuria [Recovered/Resolved]
  - Haemoglobin decreased [Recovered/Resolved]
